FAERS Safety Report 25083766 (Version 2)
Quarter: 2025Q1

REPORT INFORMATION
  Report Type: Spontaneous
  Country: US (occurrence: US)
  Receive Date: 20250317
  Receipt Date: 20250318
  Transmission Date: 20250408
  Serious: Yes (Other)
  Sender: BAYER HEALTHCARE PHARMACEUTICALS INC.
  Company Number: US-BAYER-2025A033384

PATIENT
  Age: 48 Year
  Sex: Female
  Weight: 88.889 kg

DRUGS (3)
  1. MIRENA [Suspect]
     Active Substance: LEVONORGESTREL
     Indication: Contraception
     Dosage: 20?G/DAY
     Route: 015
     Dates: start: 20200110, end: 20250120
  2. MIRENA [Suspect]
     Active Substance: LEVONORGESTREL
     Indication: Genital haemorrhage
  3. IBUPROFEN [Concomitant]
     Active Substance: IBUPROFEN

REACTIONS (5)
  - Device breakage [None]
  - Embedded device [Recovered/Resolved]
  - Abdominal pain lower [Recovered/Resolved]
  - Genital haemorrhage [Recovered/Resolved]
  - Complication of device removal [None]

NARRATIVE: CASE EVENT DATE: 20250117
